FAERS Safety Report 7405748-2 (Version None)
Quarter: 2011Q2

REPORT INFORMATION
  Report Type: 
  Country: None (occurrence: None)
  Receive Date: 20110411
  Receipt Date: 20110405
  Transmission Date: 20111010
  Serious: Yes (Death, Hospitalization, Other)
  Sender: FDA-Public Use
  Company Number: US-PFIZER INC-2011076347

PATIENT

DRUGS (18)
  1. SOMAVERT [Suspect]
     Indication: ACROMEGALY
     Dosage: 10 MG, 1X/DAY
     Route: 058
     Dates: start: 20081021, end: 20090108
  2. WARFARIN SODIUM [Concomitant]
     Dosage: 7.5 MG, EVERY EVENING
  3. SOMAVERT [Suspect]
     Dosage: 20 MG, 1X/DAY
     Dates: start: 20090109
  4. ASPIRIN [Concomitant]
     Dosage: 325 MG, 1X/DAY
  5. CEFEPIME [Concomitant]
     Dosage: 3 G, 2X/DAY
  6. MAGNESIUM OXIDE [Concomitant]
     Dosage: UNK
  7. HYDROCORTISONE [Concomitant]
     Dosage: 200 MG IN AM, 10 MG IN AFTERNOON
  8. LOPRESSOR [Concomitant]
     Dosage: UNK
  9. DARVOCET [Concomitant]
     Dosage: UNK
  10. XANAX [Concomitant]
     Dosage: UNK
  11. CELEXA [Concomitant]
     Dosage: 20 MG/EVENING
  12. SOMATULINE AUTOGEL [Suspect]
     Indication: ACROMEGALY
     Dosage: 120 MG, MONTHLY
     Route: 030
     Dates: start: 20080715
  13. PERSANTINE [Concomitant]
     Dosage: 75 MG, 3X/DAY
  14. PRILOSEC [Concomitant]
     Dosage: 20 MG, 1X/DAY
  15. CYMBALTA [Concomitant]
     Dosage: 90 MG, EVERY MORNING
  16. FLAGYL [Concomitant]
     Dosage: 500 MG, 3X/DAY
  17. REVATIO [Concomitant]
     Dosage: 40 MG, 3X/DAY
  18. AMIODARONE [Concomitant]
     Dosage: 200 MG, 1X/DAY

REACTIONS (4)
  - CLOSTRIDIUM TEST POSITIVE [None]
  - RECTAL HAEMORRHAGE [None]
  - SEPSIS [None]
  - CARDIAC FAILURE CONGESTIVE [None]
